FAERS Safety Report 15624402 (Version 2)
Quarter: 2019Q4

REPORT INFORMATION
  Report Type: Spontaneous
  Country: FI (occurrence: FI)
  Receive Date: 20181116
  Receipt Date: 20191003
  Transmission Date: 20200122
  Serious: Yes (Hospitalization)
  Sender: FDA-Public Use
  Company Number: FI-ROCHE-2202986

PATIENT
  Age: 38 Year
  Sex: Female

DRUGS (22)
  1. IMOVANE [Concomitant]
     Active Substance: ZOPICLONE
     Dosage: AS NEEDED
     Route: 048
  2. DIPROSALIC [Concomitant]
     Active Substance: BETAMETHASONE DIPROPIONATE
     Dosage: AS NEEDED
     Route: 065
  3. VAGIFEM [Concomitant]
     Active Substance: ESTRADIOL
     Route: 067
  4. HISTEC [Concomitant]
     Active Substance: CETIRIZINE HYDROCHLORIDE
     Dosage: AS NEEDED
     Route: 048
  5. DERMOVATE [Concomitant]
     Active Substance: CLOBETASOL
     Indication: PSORIASIS
     Dosage: AS NEEDED
     Route: 065
  6. PARACETAMOL [Concomitant]
     Active Substance: ACETAMINOPHEN
     Route: 065
     Dates: start: 20181003
  7. BURANA [Concomitant]
     Active Substance: IBUPROFEN
     Indication: PAIN
     Dosage: MAXIMUM TOTAL DAILY DOSE 1800MG, AS NEEDED
     Route: 048
  8. PANADOL FORTE [CAFFEINE;PARACETAMOL] [Concomitant]
     Dosage: MAXIMUM DAILY DOSE 3G, AS NEEDED
     Route: 048
  9. CARDACE [RAMIPRIL] [Concomitant]
     Dosage: 5,MG,DAILY
     Route: 048
  10. KALCIPOS-D [Concomitant]
     Active Substance: CALCIUM CARBONATE\CHOLECALCIFEROL
     Dosage: 500MG/400IU
     Route: 048
  11. METHYLPREDNISOLONE. [Concomitant]
     Active Substance: METHYLPREDNISOLONE
     Route: 065
     Dates: start: 20181003
  12. LEVOLAC [Concomitant]
     Active Substance: LACTULOSE
     Dosage: AS NEEDED
     Route: 065
  13. MELATONIN [Concomitant]
     Active Substance: MELATONIN
     Dosage: AS NEEDED
     Route: 048
  14. OPAMOX [Concomitant]
     Active Substance: OXAZEPAM
     Dosage: AS NEEDED
     Route: 048
  15. TENOX [TEMAZEPAM] [Concomitant]
     Dosage: 0.5-1 TABLET AS NEEDED
     Route: 048
  16. DAIVOBET [Concomitant]
     Active Substance: BETAMETHASONE DIPROPIONATE\CALCIPOTRIENE
     Indication: PSORIASIS
     Dosage: AS NEEDED
     Route: 065
  17. OCREVUS [Suspect]
     Active Substance: OCRELIZUMAB
     Indication: MULTIPLE SCLEROSIS
     Dosage: MOST RECENT DOSE WAS RECEIVED ON 17/OCT/2018
     Route: 042
     Dates: start: 20181003
  18. SEPRAM [Concomitant]
     Active Substance: CITALOPRAM HYDROBROMIDE
     Indication: DEPRESSION
     Route: 048
  19. CETIRIZINE [Concomitant]
     Active Substance: CETIRIZINE HYDROCHLORIDE
     Route: 065
  20. IMODIUM [Concomitant]
     Active Substance: LOPERAMIDE HYDROCHLORIDE
     Indication: DIARRHOEA
     Dosage: MAXIMUM DAILY DOSE 6 CAPSULES, AS NEEDED
     Route: 048
  21. PEVISONE [ECONAZOLE NITRATE;TRIAMCINOLONE ACETONIDE] [Concomitant]
     Indication: PSORIASIS
     Dosage: AS NEEDED
     Route: 065
  22. PROTOPIC [Concomitant]
     Active Substance: TACROLIMUS
     Indication: PSORIASIS
     Dosage: AS NEEDED
     Route: 065

REACTIONS (2)
  - Blood pressure increased [Not Recovered/Not Resolved]
  - Visual impairment [Not Recovered/Not Resolved]

NARRATIVE: CASE EVENT DATE: 20181017
